FAERS Safety Report 11836148 (Version 1)
Quarter: 2015Q4

REPORT INFORMATION
  Report Type: Spontaneous
  Country: US (occurrence: None)
  Receive Date: 20151214
  Receipt Date: 20151214
  Transmission Date: 20160305
  Serious: Yes (Hospitalization)
  Sender: FDA-Public Use
  Company Number: None

PATIENT
  Age: 59 Year
  Sex: Male
  Weight: 99.9 kg

DRUGS (1)
  1. VANCOMYCIN [Suspect]
     Active Substance: VANCOMYCIN
     Indication: CELLULITIS
     Route: 042
     Dates: start: 20150619, end: 20150619

REACTIONS (5)
  - Erythema [None]
  - Pruritus [None]
  - Dyspnoea [None]
  - Use of accessory respiratory muscles [None]
  - Anaphylactic reaction [None]

NARRATIVE: CASE EVENT DATE: 20150818
